FAERS Safety Report 7968955-6 (Version None)
Quarter: 2011Q4

REPORT INFORMATION
  Report Type: 
  Country: None (occurrence: None)
  Receive Date: 20111209
  Receipt Date: 20110912
  Transmission Date: 20120403
  Serious: No
  Sender: FDA-Public Use
  Company Number: US-BAYER-2011-085596

PATIENT
  Age: 61 Year
  Sex: Female
  Weight: 52 kg

DRUGS (1)
  1. ASPIRIN [Suspect]
     Indication: MYALGIA
     Dosage: 325 MG, QD
     Route: 048
     Dates: start: 20110830, end: 20110905

REACTIONS (1)
  - MYALGIA [None]
